FAERS Safety Report 13657551 (Version 6)
Quarter: 2018Q3

REPORT INFORMATION
  Report Type: Report from Study
  Country: US (occurrence: US)
  Receive Date: 20170615
  Receipt Date: 20180918
  Transmission Date: 20181010
  Serious: Yes (Hospitalization, Other)
  Sender: FDA-Public Use
  Company Number: US-ACTELION-A-US2016-147591

PATIENT
  Age: 47 Year
  Sex: Female
  Weight: 63.95 kg

DRUGS (11)
  1. VELETRI [Suspect]
     Active Substance: EPOPROSTENOL
     Dosage: 38 NG/KG, PER MIN
     Route: 042
  2. VELETRI [Suspect]
     Active Substance: EPOPROSTENOL
     Dosage: 20 NG/KG, PER MIN
     Route: 042
     Dates: start: 20160324
  3. VELETRI [Suspect]
     Active Substance: EPOPROSTENOL
     Dosage: 10 NG/KG, PER MIN
     Route: 042
     Dates: start: 20170118
  4. UPTRAVI [Concomitant]
     Active Substance: SELEXIPAG
     Indication: PULMONARY ARTERIAL HYPERTENSION
     Route: 048
  5. VELETRI [Suspect]
     Active Substance: EPOPROSTENOL
     Dosage: 16 NG/KG, PER MIN
     Route: 042
  6. VELETRI [Suspect]
     Active Substance: EPOPROSTENOL
     Dosage: 19 NG/KG, PER MIN
     Route: 042
     Dates: end: 20160324
  7. VELETRI [Suspect]
     Active Substance: EPOPROSTENOL
     Dosage: 29 NG/KG, PER MIN
     Route: 042
  8. LETAIRIS [Suspect]
     Active Substance: AMBRISENTAN
     Indication: PRODUCT USED FOR UNKNOWN INDICATION
     Dosage: 10 MG, QD
     Route: 065
     Dates: start: 20170228, end: 20170330
  9. VELETRI [Suspect]
     Active Substance: EPOPROSTENOL
     Dosage: 33 NG/KG, PER MIN
     Route: 042
  10. VELETRI [Suspect]
     Active Substance: EPOPROSTENOL
     Indication: PULMONARY ARTERIAL HYPERTENSION
     Dosage: 39 NG/KG, PER MIN
     Route: 042
  11. ADCIRCA [Concomitant]
     Active Substance: TADALAFIL
     Dosage: UNK
     Dates: end: 20170430

REACTIONS (42)
  - Hypersensitivity [Unknown]
  - Lip swelling [Unknown]
  - Headache [Unknown]
  - Dyspnoea [Unknown]
  - Treatment noncompliance [Unknown]
  - Flushing [Unknown]
  - Abdominal pain upper [Unknown]
  - Palpitations [Unknown]
  - Urticaria [Unknown]
  - Diarrhoea [Unknown]
  - Oedema [Unknown]
  - Chapped lips [Unknown]
  - Anxiety [Unknown]
  - Night sweats [Unknown]
  - Sarcoidosis [Unknown]
  - Musculoskeletal pain [Unknown]
  - Neck pain [Unknown]
  - Tremor [Unknown]
  - Weight decreased [Unknown]
  - Pain in extremity [Unknown]
  - Vomiting [Unknown]
  - Pain in jaw [Unknown]
  - Dizziness [Unknown]
  - Facial pain [Unknown]
  - Discomfort [Unknown]
  - Generalised erythema [Not Recovered/Not Resolved]
  - Abdominal pain [Unknown]
  - Sinus disorder [Unknown]
  - Device leakage [Unknown]
  - Malaise [Unknown]
  - Heart rate irregular [Unknown]
  - Rash erythematous [Unknown]
  - Eye swelling [Unknown]
  - Decreased appetite [Unknown]
  - Pruritus [Unknown]
  - Dyspnoea exertional [Unknown]
  - Skin lesion [Unknown]
  - Back pain [Unknown]
  - Feeling abnormal [Unknown]
  - Nausea [Unknown]
  - Vaginal odour [Unknown]
  - Ear discomfort [Unknown]

NARRATIVE: CASE EVENT DATE: 20170325
